FAERS Safety Report 9468944 (Version 1)
Quarter: 2013Q3

REPORT INFORMATION
  Report Type: Spontaneous
  Country: GB (occurrence: None)
  Receive Date: 20130815
  Receipt Date: 20130815
  Transmission Date: 20140515
  Serious: Yes (Other)
  Sender: FDA-Public Use
  Company Number: AUR-APL-2013-06575

PATIENT
  Sex: Male

DRUGS (1)
  1. LAMOTRIGINE (LAMOTRIGINE) [Suspect]

REACTIONS (1)
  - Osteonecrosis [None]
